FAERS Safety Report 8901426 (Version 1)
Quarter: 2012Q4

REPORT INFORMATION
  Report Type: Report from Study
  Country: CA (occurrence: CA)
  Receive Date: 20121109
  Receipt Date: 20121109
  Transmission Date: 20130627
  Serious: Yes (Hospitalization, Disabling)
  Sender: FDA-Public Use
  Company Number: CA-JNJFOC-20121100279

PATIENT
  Sex: Female
  Weight: 74 kg

DRUGS (8)
  1. REMICADE [Suspect]
     Indication: RHEUMATOID ARTHRITIS
     Dosage: had total of 20 infusions
     Route: 042
     Dates: start: 2010
  2. TYLENOL [Concomitant]
     Route: 065
  3. CALCIUM AND VIT D [Concomitant]
     Route: 065
  4. RHOVANE [Concomitant]
     Route: 065
  5. QUETIAPINE [Concomitant]
     Route: 065
  6. METOPROLOL [Concomitant]
     Route: 065
  7. MULTIVITAMINS [Concomitant]
     Route: 065
  8. CIPRALEX [Concomitant]
     Route: 065

REACTIONS (2)
  - Fall [Not Recovered/Not Resolved]
  - Abasia [Not Recovered/Not Resolved]
